FAERS Safety Report 18528350 (Version 1)
Quarter: 2020Q4

REPORT INFORMATION
  Report Type: Spontaneous
  Country: US (occurrence: US)
  Receive Date: 20201120
  Receipt Date: 20201120
  Transmission Date: 20210114
  Serious: Yes (Hospitalization)
  Sender: FDA-Public Use
  Company Number: US-VERTEX PHARMACEUTICALS-2020-021236

PATIENT
  Age: 15 Year
  Sex: Female

DRUGS (13)
  1. SYMBICORT [Concomitant]
     Active Substance: BUDESONIDE\FORMOTEROL FUMARATE DIHYDRATE
     Dosage: 160/ 4.5 MCG INHALER
  2. LEVALBUTEROL [LEVOSALBUTAMOL] [Concomitant]
     Active Substance: LEVALBUTEROL
     Dosage: UNK
  3. VITAMIN D [COLECALCIFEROL] [Concomitant]
     Active Substance: CHOLECALCIFEROL
     Dosage: 400-400 UNIT TABLET
  4. ZYRTEC [Concomitant]
     Active Substance: CETIRIZINE HYDROCHLORIDE
     Dosage: 10 MILLIGRAM
  5. PULMOZYME [Concomitant]
     Active Substance: DORNASE ALFA
     Dosage: 1 MILLIGRAM PER MILLILITRE
  6. CYPROHEPTADINE HCL [Concomitant]
     Active Substance: CYPROHEPTADINE HYDROCHLORIDE
     Dosage: 4 MILLIGRAM
  7. SINGULAIR [Concomitant]
     Active Substance: MONTELUKAST SODIUM
     Dosage: 10 MILLIGRAM
  8. IPRATROPIUM BROMIDE. [Concomitant]
     Active Substance: IPRATROPIUM BROMIDE
     Dosage: 21 MICROGRAM
  9. SALINE NASAL MIST [Concomitant]
     Dosage: 0.65 %
  10. TRIKAFTA [Suspect]
     Active Substance: ELEXACAFTOR\IVACAFTOR\TEZACAFTOR
     Indication: CYSTIC FIBROSIS
     Dosage: 2 ORANGE TABS100 MG ELEXACAFTOR/ 50 MG TEZACAFTOR/ 75 MG IVACAFTOR AM; 1 BLUE TAB150MG IVACAFTOR PM
     Route: 048
  11. TOBI PODHALER [Concomitant]
     Active Substance: TOBRAMYCIN
     Dosage: 300 MG/ 5ML AMPULE
  12. FLUTICASONE + SALMETEROL [Concomitant]
     Active Substance: FLUTICASONE FUROATE\SALMETEROL XINAFOATE
     Dosage: UNK
  13. RANITIDINE. [Concomitant]
     Active Substance: RANITIDINE
     Dosage: 150 MILLIGRAM

REACTIONS (1)
  - Cystic fibrosis respiratory infection suppression [Unknown]

NARRATIVE: CASE EVENT DATE: 202010
